FAERS Safety Report 9791157 (Version 1)
Quarter: 2013Q4

REPORT INFORMATION
  Report Type: Report from Study
  Country: NL (occurrence: NL)
  Receive Date: 20131231
  Receipt Date: 20131231
  Transmission Date: 20140711
  Serious: Yes (Other)
  Sender: FDA-Public Use
  Company Number: NL-ABBVIE-13P-114-1184008-00

PATIENT
  Age: 47 Year
  Sex: Female
  Weight: 62 kg

DRUGS (2)
  1. LUCRIN [Suspect]
     Indication: BREAST CANCER
     Route: 058
     Dates: start: 20110629, end: 20130528
  2. CODEIN [Concomitant]
     Indication: HOT FLUSH
     Dosage: UNKNOWN FREQUENCY
     Dates: start: 201312

REACTIONS (2)
  - Haemorrhage [Recovered/Resolved]
  - Hot flush [Not Recovered/Not Resolved]
